FAERS Safety Report 18023889 (Version 1)
Quarter: 2020Q3

REPORT INFORMATION
  Report Type: Spontaneous
  Country: US (occurrence: US)
  Receive Date: 20200714
  Receipt Date: 20200714
  Transmission Date: 20201103
  Serious: Yes (Other)
  Sender: FDA-Public Use
  Company Number: US-B.I. PHARMACEUTICALS,INC./RIDGEFIELD-2020-BI-034628

PATIENT
  Age: 48 Year
  Sex: Female
  Weight: 119.7 kg

DRUGS (2)
  1. MIRAPEX [Suspect]
     Active Substance: PRAMIPEXOLE DIHYDROCHLORIDE
     Indication: RESTLESS LEGS SYNDROME
     Route: 065
  2. ENTYVIO [Suspect]
     Active Substance: VEDOLIZUMAB
     Indication: CROHN^S DISEASE
     Dosage: DOSAGE FORM: INFUSION
     Route: 065
     Dates: start: 202003

REACTIONS (9)
  - Crohn^s disease [Recovered/Resolved]
  - Abdominal pain upper [Unknown]
  - Restless legs syndrome [Unknown]
  - Constipation [Unknown]
  - Hiccups [Unknown]
  - Pyrexia [Unknown]
  - Arthralgia [Unknown]
  - Alopecia [Not Recovered/Not Resolved]
  - Gallbladder hypofunction [Unknown]

NARRATIVE: CASE EVENT DATE: 20200424
